FAERS Safety Report 24817831 (Version 2)
Quarter: 2025Q1

REPORT INFORMATION
  Report Type: Report from Study
  Country: CN (occurrence: CN)
  Receive Date: 20250108
  Receipt Date: 20250121
  Transmission Date: 20250409
  Serious: Yes (Other)
  Sender: GILEAD
  Company Number: CN-GILEAD-2025-0699014

PATIENT
  Age: 64 Year
  Sex: Female

DRUGS (6)
  1. SACITUZUMAB GOVITECAN-HZIY [Suspect]
     Active Substance: SACITUZUMAB GOVITECAN-HZIY
     Indication: Breast cancer
     Dosage: 360 MG, Q3WK, C17D1, D8
     Route: 041
     Dates: start: 20250104
  2. SACITUZUMAB GOVITECAN-HZIY [Suspect]
     Active Substance: SACITUZUMAB GOVITECAN-HZIY
     Dosage: 360 MG, Q3WK D1, D8
     Route: 041
     Dates: start: 20250113
  3. BEVACIZUMAB [Concomitant]
     Active Substance: BEVACIZUMAB
     Dosage: 200 MG, Q3WK, D1, 8
     Route: 041
  4. BEVACIZUMAB [Concomitant]
     Active Substance: BEVACIZUMAB
     Dosage: 200 MG, Q3WK C17D8
     Route: 041
     Dates: start: 20250113
  5. SINTILIMAB [Concomitant]
     Active Substance: SINTILIMAB
     Dosage: 200 MG, Q3WK, D8
     Route: 041
  6. SINTILIMAB [Concomitant]
     Active Substance: SINTILIMAB
     Dosage: 200 MG, Q3WK, D8
     Route: 041
     Dates: start: 20250113

REACTIONS (9)
  - Metastases to bone [Unknown]
  - Metastases to central nervous system [Unknown]
  - Myelosuppression [Unknown]
  - Hepatic failure [Unknown]
  - Nutritional condition abnormal [Unknown]
  - Sleep disorder [Unknown]
  - Electrolyte imbalance [Unknown]
  - Humerus fracture [Unknown]
  - Anaemia [Unknown]
